FAERS Safety Report 10611019 (Version 1)
Quarter: 2014Q4

REPORT INFORMATION
  Report Type: Report from Study
  Country: CA (occurrence: CA)
  Receive Date: 20141126
  Receipt Date: 20141126
  Transmission Date: 20150529
  Serious: Yes (Other)
  Sender: FDA-Public Use
  Company Number: CA-BRISTOL-MYERS SQUIBB COMPANY-21623533

PATIENT
  Age: 84 Year
  Sex: Male

DRUGS (10)
  1. APO-RAMIPRIL [Concomitant]
     Active Substance: RAMIPRIL
  2. ASAPHEN [Concomitant]
     Active Substance: ASPIRIN
  3. ONEALFA [Concomitant]
     Active Substance: ALFACALCIDOL
  4. QUININE [Concomitant]
     Active Substance: QUININE
  5. PANTOPRAZOLE [Concomitant]
     Active Substance: PANTOPRAZOLE SODIUM
  6. ORENCIA [Suspect]
     Active Substance: ABATACEPT
     Indication: RHEUMATOID ARTHRITIS
     Route: 042
     Dates: start: 20090723
  7. TYLENOL [Concomitant]
     Active Substance: ACETAMINOPHEN
  8. VITAMIN D [Concomitant]
     Active Substance: CHOLECALCIFEROL
  9. LASIX [Concomitant]
     Active Substance: FUROSEMIDE
  10. LIPITOR [Concomitant]
     Active Substance: ATORVASTATIN CALCIUM

REACTIONS (1)
  - Cataract [Not Recovered/Not Resolved]
